FAERS Safety Report 7178494-0 (Version None)
Quarter: 2010Q4

REPORT INFORMATION
  Report Type: 
  Country: None (occurrence: None)
  Receive Date: 20101220
  Receipt Date: 20101215
  Transmission Date: 20110411
  Serious: Yes (Other)
  Sender: FDA-Public Use
  Company Number: NL-GILEAD-2010-0034475

PATIENT
  Sex: Female

DRUGS (2)
  1. HEPSERA [Suspect]
     Indication: HEPATITIS B
     Dates: start: 20080101
  2. LAMIVUDINE [Concomitant]
     Indication: HEPATITIS B
     Dates: start: 20000101

REACTIONS (2)
  - DRUG INEFFECTIVE [None]
  - VIRAL LOAD INCREASED [None]
